FAERS Safety Report 6813749-8 (Version None)
Quarter: 2010Q3

REPORT INFORMATION
  Report Type: 
  Country: None (occurrence: None)
  Receive Date: 20100701
  Receipt Date: 20100623
  Transmission Date: 20110219
  Serious: Yes (Other)
  Sender: FDA-Public Use
  Company Number: CA-AMGEN-KDL381820

PATIENT
  Sex: Male
  Weight: 57.7 kg

DRUGS (5)
  1. ENBREL [Suspect]
     Indication: RHEUMATOID ARTHRITIS
     Route: 058
     Dates: start: 20091209, end: 20100303
  2. HUMIRA [Suspect]
     Route: 058
     Dates: start: 20100104, end: 20100106
  3. PRILOSEC [Concomitant]
  4. NAPROXEN [Concomitant]
  5. PREDNISONE TAB [Concomitant]

REACTIONS (4)
  - ARTHRALGIA [None]
  - DIZZINESS [None]
  - DRUG INEFFECTIVE [None]
  - THERAPEUTIC RESPONSE DECREASED [None]
